FAERS Safety Report 21903897 (Version 1)
Quarter: 2023Q1

REPORT INFORMATION
  Report Type: Report from Study
  Country: TW (occurrence: TW)
  Receive Date: 20230124
  Receipt Date: 20230124
  Transmission Date: 20230417
  Serious: Yes (Hospitalization, Other)
  Sender: FDA-Public Use
  Company Number: TW-ABBVIE-4276944

PATIENT
  Age: 37 Year
  Sex: Male
  Weight: 88 kg

DRUGS (4)
  1. HUMIRA [Suspect]
     Active Substance: ADALIMUMAB
     Indication: Colitis ulcerative
     Route: 058
     Dates: start: 20220221, end: 20230102
  2. IMURAN [Concomitant]
     Active Substance: AZATHIOPRINE
     Indication: Colitis ulcerative
     Route: 048
     Dates: start: 20210507
  3. LOPERAMIDE [Concomitant]
     Active Substance: LOPERAMIDE
     Indication: Insomnia
     Route: 048
     Dates: start: 20220509
  4. METHYLPREDNISOLONE [Concomitant]
     Active Substance: METHYLPREDNISOLONE
     Indication: Colitis ulcerative
     Route: 048
     Dates: start: 20210507

REACTIONS (14)
  - Intracranial hypotension [Recovered/Resolved]
  - Muscle tightness [Unknown]
  - Myofascial pain syndrome [Unknown]
  - CSF test abnormal [Unknown]
  - Cerebrospinal fluid leakage [Unknown]
  - Brain herniation [Unknown]
  - Tinnitus [Unknown]
  - Magnetic resonance imaging head abnormal [Unknown]
  - Altered state of consciousness [Unknown]
  - Intracranial hypotension [Unknown]
  - Brain oedema [Unknown]
  - Subdural haematoma [Unknown]
  - Neck pain [Unknown]
  - Back pain [Unknown]

NARRATIVE: CASE EVENT DATE: 20220827
